FAERS Safety Report 6500776-3 (Version None)
Quarter: 2009Q4

REPORT INFORMATION
  Report Type: 
  Country: None (occurrence: None)
  Receive Date: 20091216
  Receipt Date: 20090218
  Transmission Date: 20100525
  Serious: No
  Sender: FDA-Public Use
  Company Number: A0769252A

PATIENT
  Age: 72 Year

DRUGS (1)
  1. COMMIT [Suspect]

REACTIONS (5)
  - ACCIDENTAL EXPOSURE [None]
  - MALAISE [None]
  - NAUSEA [None]
  - RETCHING [None]
  - TREMOR [None]
